FAERS Safety Report 6078568-1 (Version None)
Quarter: 2009Q1

REPORT INFORMATION
  Report Type: 
  Country: None (occurrence: None)
  Receive Date: 20090212
  Receipt Date: 20090127
  Transmission Date: 20090719
  Serious: Yes (Hospitalization)
  Sender: FDA-Public Use
  Company Number: 0358

PATIENT
  Age: 25 Year
  Sex: Female

DRUGS (3)
  1. METHYLDOPA [Suspect]
     Indication: HYPERTENSION
     Dosage: 750 MG PO
     Route: 048
  2. LABETALOL HYDROCHLORIDE [Suspect]
     Indication: HYPERTENSION
     Dosage: 300 MG PO
     Route: 048
  3. URAPIDIL [Suspect]
     Indication: HYPERTENSION
     Dosage: 240 MG/2400 MG IV
     Route: 042

REACTIONS (5)
  - BLOOD PRESSURE INADEQUATELY CONTROLLED [None]
  - CAESAREAN SECTION [None]
  - DRUG EXPOSURE DURING PREGNANCY [None]
  - DRUG INEFFECTIVE [None]
  - PREMATURE LABOUR [None]
